FAERS Safety Report 6938691-3 (Version None)
Quarter: 2010Q3

REPORT INFORMATION
  Report Type: 
  Country: None (occurrence: None)
  Receive Date: 20100824
  Receipt Date: 20100811
  Transmission Date: 20110219
  Serious: Yes (Other)
  Sender: FDA-Public Use
  Company Number: PHHY2010US53012

PATIENT
  Age: 16 Year
  Sex: Male

DRUGS (7)
  1. FOCALIN [Suspect]
     Indication: ATTENTION DEFICIT/HYPERACTIVITY DISORDER
     Dosage: 5 MG PER DAY
  2. FOCALIN [Suspect]
     Dosage: 10 MG PER DAY
  3. FOCALIN [Suspect]
     Dosage: 10 MG, BID
  4. FOCALIN [Suspect]
     Dosage: 10 MG PER DAY
  5. CONCERTA [Suspect]
     Indication: ATTENTION DEFICIT/HYPERACTIVITY DISORDER
     Dosage: 54 MG PER DAY
  6. CONCERTA [Suspect]
     Dosage: 72 MG PER DAY
  7. CONCERTA [Suspect]
     Dosage: 90 MG PER DAY

REACTIONS (3)
  - ANGIOPATHY [None]
  - POOR PERIPHERAL CIRCULATION [None]
  - SKIN DISCOLOURATION [None]
